FAERS Safety Report 25089765 (Version 1)
Quarter: 2025Q1

REPORT INFORMATION
  Report Type: Spontaneous
  Country: US (occurrence: None)
  Receive Date: 20250317
  Receipt Date: 20250317
  Transmission Date: 20250409
  Serious: No
  Sender: FDA-CTU
  Company Number: None

PATIENT

DRUGS (1)
  1. MAYZENT [Suspect]
     Active Substance: SIPONIMOD

REACTIONS (8)
  - Pneumonia [None]
  - Muscular weakness [None]
  - Restless legs syndrome [None]
  - Throat cancer [None]
  - Dysphagia [None]
  - Odynophagia [None]
  - Hypoaesthesia [None]
  - Paraesthesia [None]
